FAERS Safety Report 14703249 (Version 1)
Quarter: 2018Q2

REPORT INFORMATION
  Report Type: Spontaneous
  Country: FR (occurrence: FR)
  Receive Date: 20180402
  Receipt Date: 20180402
  Transmission Date: 20180711
  Serious: Yes (Other)
  Sender: FDA-Public Use
  Company Number: FR-MERCK KGAA-2044897

PATIENT
  Age: 48 Year
  Sex: Female

DRUGS (1)
  1. NOVOTHYROX [Suspect]
     Active Substance: LEVOTHYROXINE SODIUM
     Indication: PRODUCT USED FOR UNKNOWN INDICATION
     Dates: start: 20170812, end: 201710

REACTIONS (9)
  - Dizziness [Recovering/Resolving]
  - Tachycardia [None]
  - Muscle spasms [Recovered/Resolved]
  - Insomnia [Recovered/Resolved]
  - Ankylosing spondylitis [None]
  - Anxiety [None]
  - Loss of personal independence in daily activities [None]
  - Fatigue [None]
  - Asthenia [Recovered/Resolved]

NARRATIVE: CASE EVENT DATE: 201708
